FAERS Safety Report 15348066 (Version 1)
Quarter: 2018Q3

REPORT INFORMATION
  Report Type: Spontaneous
  Country: BR (occurrence: BR)
  Receive Date: 20180904
  Receipt Date: 20180904
  Transmission Date: 20181010
  Serious: Yes (Other)
  Sender: FDA-Public Use
  Company Number: BR-PFIZER INC-2018337593

PATIENT
  Age: 54 Year
  Sex: Male

DRUGS (5)
  1. OMEPRAZOLE. [Concomitant]
     Active Substance: OMEPRAZOLE
     Dosage: UNK
  2. LORAX [Suspect]
     Active Substance: LORAZEPAM
     Indication: DEPRESSION
     Dosage: 2 MG, 1X/DAY (1 TABLET OF 2MG EVERY NIGHT)
     Dates: start: 2008
  3. SIMVASTATIN. [Concomitant]
     Active Substance: SIMVASTATIN
     Dosage: UNK
  4. ESCITALOPRAM [Concomitant]
     Active Substance: ESCITALOPRAM OXALATE
     Dosage: 10 MG, 1X/DAY (1 TABLET AT MORNING)
  5. LORAX [Suspect]
     Active Substance: LORAZEPAM
     Indication: ANXIETY

REACTIONS (7)
  - Arthralgia [Not Recovered/Not Resolved]
  - Feeling abnormal [Recovered/Resolved]
  - Insomnia [Recovered/Resolved]
  - Subcutaneous abscess [Recovered/Resolved]
  - Back pain [Recovered/Resolved]
  - Incorrect drug administration duration [Unknown]
  - Chest discomfort [Recovered/Resolved]

NARRATIVE: CASE EVENT DATE: 2008
